FAERS Safety Report 9160082 (Version 1)
Quarter: 2013Q1

REPORT INFORMATION
  Report Type: Spontaneous
  Country: JP (occurrence: JP)
  Receive Date: 20130313
  Receipt Date: 20130313
  Transmission Date: 20140127
  Serious: Yes (Other)
  Sender: FDA-Public Use
  Company Number: JP-ASTRAZENECA-2013SE15497

PATIENT
  Age: 77 Year
  Sex: Female

DRUGS (1)
  1. OMEPRAL [Suspect]
     Dosage: 20
     Route: 048
     Dates: start: 200910, end: 200912

REACTIONS (1)
  - Drug-induced liver injury [Unknown]
